FAERS Safety Report 25300887 (Version 1)
Quarter: 2025Q2

REPORT INFORMATION
  Report Type: Spontaneous
  Country: US (occurrence: US)
  Receive Date: 20250512
  Receipt Date: 20250512
  Transmission Date: 20250717
  Serious: No
  Sender: BIOGEN
  Company Number: US-BIOGEN-2025BI01298826

PATIENT
  Sex: Female

DRUGS (24)
  1. AVONEX [Suspect]
     Active Substance: INTERFERON BETA-1A
     Indication: Multiple sclerosis
     Route: 050
     Dates: start: 20180821
  2. AVONEX [Suspect]
     Active Substance: INTERFERON BETA-1A
  3. AVONEX [Suspect]
     Active Substance: INTERFERON BETA-1A
  4. AVONEX [Suspect]
     Active Substance: INTERFERON BETA-1A
  5. ALBUTEROL SU AER [Concomitant]
     Route: 050
  6. ASPIRIN TBE [Concomitant]
     Route: 050
  7. ATORVASTATIN [Concomitant]
     Active Substance: ATORVASTATIN
     Route: 050
  8. BUSPIRONE HC [Concomitant]
     Route: 050
  9. DICLOFENACS TBE [Concomitant]
     Route: 050
  10. DILTIAZEM HC CP2 [Concomitant]
     Route: 050
  11. DOXYCYCLINE CPD [Concomitant]
     Route: 050
  12. DULOXETINE H CPE [Concomitant]
     Route: 050
  13. FUROSEMIDE [Concomitant]
     Active Substance: FUROSEMIDE
     Route: 050
  14. GABAPENTIN [Concomitant]
     Active Substance: GABAPENTIN
     Route: 050
  15. LEVOTHYROXINE [Concomitant]
     Active Substance: LEVOTHYROXINE
     Route: 050
  16. METHOCARBAMO [Concomitant]
     Route: 050
  17. METOPROLOL T [Concomitant]
     Route: 050
  18. MIRTAZAPINE [Concomitant]
     Active Substance: MIRTAZAPINE
     Route: 050
  19. OXYBUTYNIN C [Concomitant]
     Route: 050
  20. OZEMPIC [Concomitant]
     Active Substance: SEMAGLUTIDE
     Route: 050
  21. PANTOPRAZOLE PAC [Concomitant]
     Route: 050
  22. PROMETHAZINE [Concomitant]
     Active Substance: PROMETHAZINE HYDROCHLORIDE
     Route: 050
  23. SPIRONOLACTO [Concomitant]
     Route: 050
  24. TYLENOL EXTR [Concomitant]
     Route: 050

REACTIONS (19)
  - Respiratory disorder [Not Recovered/Not Resolved]
  - Sinus disorder [Not Recovered/Not Resolved]
  - Anal incontinence [Not Recovered/Not Resolved]
  - Tremor [Not Recovered/Not Resolved]
  - Speech disorder [Not Recovered/Not Resolved]
  - Eye movement disorder [Not Recovered/Not Resolved]
  - Back pain [Not Recovered/Not Resolved]
  - Urinary incontinence [Not Recovered/Not Resolved]
  - Aphasia [Not Recovered/Not Resolved]
  - Disturbance in attention [Not Recovered/Not Resolved]
  - Decreased appetite [Not Recovered/Not Resolved]
  - Poor quality sleep [Not Recovered/Not Resolved]
  - Dysstasia [Not Recovered/Not Resolved]
  - Visual impairment [Not Recovered/Not Resolved]
  - Memory impairment [Unknown]
  - Pain in extremity [Not Recovered/Not Resolved]
  - Hypoaesthesia [Not Recovered/Not Resolved]
  - Paraesthesia [Not Recovered/Not Resolved]
  - Arthralgia [Not Recovered/Not Resolved]
